FAERS Safety Report 19678498 (Version 3)
Quarter: 2022Q2

REPORT INFORMATION
  Report Type: Spontaneous
  Country: US (occurrence: US)
  Receive Date: 20210809
  Receipt Date: 20220516
  Transmission Date: 20220721
  Serious: No
  Sender: FDA-Public Use
  Company Number: US-PFIZER INC-2021595545

PATIENT
  Age: 61 Year
  Sex: Male
  Weight: 74.84 kg

DRUGS (3)
  1. XELJANZ XR [Suspect]
     Active Substance: TOFACITINIB CITRATE
     Indication: Rheumatoid arthritis
     Dosage: 11MG/TAKE 1 TABLET ORALLY ONCE PER DAY FOR 30 DAYS
     Route: 048
  2. XELJANZ XR [Suspect]
     Active Substance: TOFACITINIB CITRATE
     Indication: Crohn^s disease
     Dosage: 11 MG, DAILY (ONE TABLET DAILY BY MOUTH)
     Route: 048
     Dates: start: 2019
  3. FLOMAX [Concomitant]
     Active Substance: TAMSULOSIN HYDROCHLORIDE
     Indication: Prostate cancer
     Dosage: 0.8 MG, 1X/DAY
     Dates: start: 201703

REACTIONS (1)
  - Depressed mood [Unknown]
